FAERS Safety Report 6140728-9 (Version None)
Quarter: 2009Q1

REPORT INFORMATION
  Report Type: 
  Country: None (occurrence: None)
  Receive Date: 20090330
  Receipt Date: 20090330
  Transmission Date: 20090719
  Serious: Yes (Other)
  Sender: FDA-Public Use
  Company Number: None

PATIENT
  Sex: Female
  Weight: 20.8655 kg

DRUGS (1)
  1. MYSOLINE [Suspect]
     Indication: CONVULSION
     Dosage: 50MGM 50 BID 100 QHS 049 GTUBE PRIOR TO 5/10/2002

REACTIONS (1)
  - THERAPEUTIC RESPONSE UNEXPECTED WITH DRUG SUBSTITUTION [None]
